FAERS Safety Report 5660014-0 (Version None)
Quarter: 2008Q1

REPORT INFORMATION
  Report Type: 
  Country: None (occurrence: None)
  Receive Date: 20080311
  Receipt Date: 20070821
  Transmission Date: 20080703
  Serious: No
  Sender: FDA-Public Use
  Company Number: US-BAYER-200712700BCC

PATIENT
  Age: 82 Year
  Sex: Female

DRUGS (3)
  1. ALEVE [Suspect]
     Indication: ARTHRALGIA
     Route: 048
     Dates: start: 20070101
  2. BLOOD PRESSURE MEDICATIONS [Concomitant]
  3. DIABETES MEDICATIONS [Concomitant]

REACTIONS (1)
  - CONSTIPATION [None]
